FAERS Safety Report 13083275 (Version 2)
Quarter: 2017Q1

REPORT INFORMATION
  Report Type: Report from Study
  Country: US (occurrence: US)
  Receive Date: 20170104
  Receipt Date: 20170113
  Transmission Date: 20170428
  Serious: Yes (Other)
  Sender: FDA-Public Use
  Company Number: US-ROCHE-1874146

PATIENT

DRUGS (12)
  1. VEMURAFENIB [Suspect]
     Active Substance: VEMURAFENIB
     Indication: NON-SMALL CELL LUNG CANCER
  2. EVEROLIMUS [Suspect]
     Active Substance: EVEROLIMUS
     Indication: MALIGNANT MELANOMA
     Route: 065
  3. EVEROLIMUS [Suspect]
     Active Substance: EVEROLIMUS
     Indication: COLORECTAL CANCER
  4. EVEROLIMUS [Suspect]
     Active Substance: EVEROLIMUS
     Indication: THYROID CANCER
  5. VEMURAFENIB [Suspect]
     Active Substance: VEMURAFENIB
     Indication: MALIGNANT MELANOMA
     Route: 065
  6. VEMURAFENIB [Suspect]
     Active Substance: VEMURAFENIB
     Indication: COLORECTAL CANCER
  7. VEMURAFENIB [Suspect]
     Active Substance: VEMURAFENIB
     Indication: APPENDIX CANCER
  8. VEMURAFENIB [Suspect]
     Active Substance: VEMURAFENIB
     Indication: MALIGNANT NERVOUS SYSTEM NEOPLASM
  9. VEMURAFENIB [Suspect]
     Active Substance: VEMURAFENIB
     Indication: THYROID CANCER
  10. EVEROLIMUS [Suspect]
     Active Substance: EVEROLIMUS
     Indication: MALIGNANT NERVOUS SYSTEM NEOPLASM
  11. EVEROLIMUS [Suspect]
     Active Substance: EVEROLIMUS
     Indication: APPENDIX CANCER
  12. EVEROLIMUS [Suspect]
     Active Substance: EVEROLIMUS
     Indication: NON-SMALL CELL LUNG CANCER

REACTIONS (6)
  - Photosensitivity reaction [Unknown]
  - Anaemia [Unknown]
  - Rash [Unknown]
  - Hypertriglyceridaemia [Unknown]
  - Fatigue [Unknown]
  - Hyperglycaemia [Unknown]
